FAERS Safety Report 22267368 (Version 2)
Quarter: 2023Q2

REPORT INFORMATION
  Report Type: Spontaneous
  Country: US (occurrence: US)
  Receive Date: 20230428
  Receipt Date: 20230627
  Transmission Date: 20230722
  Serious: No
  Sender: FDA-Public Use
  Company Number: US-THERATECHNOLOGIES INC.-2023-THE-IBA-000145

PATIENT

DRUGS (2)
  1. TROGARZO [Suspect]
     Active Substance: IBALIZUMAB-UIYK
     Indication: Antiretroviral therapy
     Dosage: 2000 MG, SINGLE
     Route: 042
     Dates: start: 202110, end: 202110
  2. TROGARZO [Suspect]
     Active Substance: IBALIZUMAB-UIYK
     Indication: HIV infection
     Dosage: 800 MG EVERY 2 WEEKS, MAINTENANCE DOSE
     Route: 042
     Dates: start: 202110, end: 202304

REACTIONS (1)
  - Therapy change [Not Recovered/Not Resolved]
